FAERS Safety Report 16848893 (Version 1)
Quarter: 2019Q3

REPORT INFORMATION
  Report Type: Spontaneous
  Country: FR (occurrence: FR)
  Receive Date: 20190925
  Receipt Date: 20190925
  Transmission Date: 20191005
  Serious: Yes (Life-Threatening)
  Sender: FDA-Public Use
  Company Number: FR-SUN PHARMACEUTICAL INDUSTRIES LTD-2019RR-221757

PATIENT
  Age: 50 Year
  Sex: Male
  Weight: 93 kg

DRUGS (8)
  1. BROMAZEPAM [Suspect]
     Active Substance: BROMAZEPAM
     Indication: TOXICITY TO VARIOUS AGENTS
     Dosage: 360 MILLIGRAM, UNK
     Route: 048
     Dates: start: 20190826
  2. PREGABALIN. [Suspect]
     Active Substance: PREGABALIN
     Indication: TOXICITY TO VARIOUS AGENTS
     Dosage: 6 GRAM, UNK
     Route: 048
     Dates: start: 20190826
  3. MIANSERIN [Suspect]
     Active Substance: MIANSERIN
     Indication: TOXICITY TO VARIOUS AGENTS
     Dosage: 3.6 GRAM, UNK
     Route: 048
     Dates: start: 20190826
  4. TRANXENE [Suspect]
     Active Substance: CLORAZEPATE DIPOTASSIUM
     Indication: TOXICITY TO VARIOUS AGENTS
     Dosage: 1.2 GRAM, UNK
     Route: 048
     Dates: start: 20190826
  5. PARACETAMOL [Suspect]
     Active Substance: ACETAMINOPHEN
     Indication: TOXICITY TO VARIOUS AGENTS
     Dosage: 24 GRAM, UNK
     Route: 048
     Dates: start: 20190826
  6. TRAMADOL. [Suspect]
     Active Substance: TRAMADOL
     Indication: TOXICITY TO VARIOUS AGENTS
     Dosage: 2 GRAM, UNK
     Route: 048
     Dates: start: 20190826
  7. ZOLPIDEM [Suspect]
     Active Substance: ZOLPIDEM TARTRATE
     Indication: TOXICITY TO VARIOUS AGENTS
     Dosage: 280 MILLIGRAM, UNK
     Route: 048
     Dates: start: 20190826
  8. ATARAX [Suspect]
     Active Substance: HYDROXYZINE HYDROCHLORIDE
     Indication: TOXICITY TO VARIOUS AGENTS
     Dosage: 750 MILLIGRAM, UNK
     Route: 048
     Dates: start: 20190826

REACTIONS (3)
  - Pneumonia aspiration [Recovered/Resolved]
  - Toxicity to various agents [Recovered/Resolved]
  - Coma [Recovered/Resolved]

NARRATIVE: CASE EVENT DATE: 20190826
